FAERS Safety Report 9174075 (Version 1)
Quarter: 2013Q1

REPORT INFORMATION
  Report Type: Spontaneous
  Country: DE (occurrence: None)
  Receive Date: 20130318
  Receipt Date: 20130318
  Transmission Date: 20140127
  Serious: Yes (Life-Threatening)
  Sender: FDA-Public Use
  Company Number: FK201300790

PATIENT
  Age: 66 Year
  Sex: Male

DRUGS (8)
  1. PROTAMINE SULFATE [Suspect]
     Indication: PRODUCT USED FOR UNKNOWN INDICATION
  2. BISOPROLOL [Concomitant]
  3. MIDAZOLAM (MIDAZOLAM) [Concomitant]
  4. REMIFENTANIL(REMIFENTANIL) [Concomitant]
  5. PROPOFOL (PROPOFOL) [Concomitant]
  6. ROCURONIUM (ROCURONIUM) [Concomitant]
  7. SEVOFLURANE (SEVOFLURANE) [Concomitant]
  8. HEPARIN (HEPARIN) [Concomitant]

REACTIONS (3)
  - Myocardial infarction [None]
  - Anaphylactic reaction [None]
  - Electrocardiogram ST segment elevation [None]
